FAERS Safety Report 9888742 (Version 2)
Quarter: 2014Q1

REPORT INFORMATION
  Report Type: Spontaneous
  Country: DK (occurrence: DK)
  Receive Date: 20140211
  Receipt Date: 20140222
  Transmission Date: 20141002
  Serious: Yes (Other)
  Sender: FDA-Public Use
  Company Number: DK-BRISTOL-MYERS SQUIBB COMPANY-20193215

PATIENT
  Age: 56 Year
  Sex: Female

DRUGS (3)
  1. ABILIFY INJECTION [Suspect]
     Dates: start: 20120807, end: 20120820
  2. ABILIFY [Suspect]
     Indication: SCHIZOPHRENIA
     Dates: start: 201208, end: 20121017
  3. SEROQUEL [Suspect]
     Indication: SCHIZOPHRENIA
     Dates: start: 20120615

REACTIONS (9)
  - Cardiac disorder [Unknown]
  - Restless legs syndrome [Unknown]
  - Restlessness [Unknown]
  - Paraesthesia [Unknown]
  - Local swelling [Unknown]
  - Throat tightness [Unknown]
  - Glossodynia [Unknown]
  - Fatigue [Unknown]
  - Akathisia [Unknown]
